FAERS Safety Report 25004611 (Version 1)
Quarter: 2025Q1

REPORT INFORMATION
  Report Type: Spontaneous
  Country: CA (occurrence: None)
  Receive Date: 20250222
  Receipt Date: 20250222
  Transmission Date: 20250409
  Serious: Yes (Death, Life-Threatening, Hospitalization, Disabling)
  Sender: FDA-CTU
  Company Number: None

PATIENT
  Age: 94 Year
  Sex: Male
  Weight: 44 kg

DRUGS (9)
  1. TYLENOL [Suspect]
     Active Substance: ACETAMINOPHEN
     Indication: Pain
     Dates: start: 20231101, end: 20240422
  2. ginseng red [Concomitant]
  3. COENZYME Q10 [Concomitant]
     Active Substance: DIETARY SUPPLEMENT\UBIDECARENONE
  4. omega3 [Concomitant]
  5. ZINC [Concomitant]
     Active Substance: ZINC
  6. d3 aspirin [Concomitant]
  7. CANDESARTAN [Concomitant]
     Active Substance: CANDESARTAN
  8. QUETIAPINE [Concomitant]
     Active Substance: QUETIAPINE
  9. Rosuvatatin [Concomitant]

REACTIONS (23)
  - Eye disorder [None]
  - Eye discharge [None]
  - Aspiration [None]
  - Dysphagia [None]
  - Starvation [None]
  - Headache [None]
  - Chest pain [None]
  - Arthralgia [None]
  - Pain in extremity [None]
  - Hyperhidrosis [None]
  - Nonspecific reaction [None]
  - Appetite disorder [None]
  - Penile blister [None]
  - Pustule [None]
  - Vomiting [None]
  - Rash pruritic [None]
  - Scratch [None]
  - Haemorrhage [None]
  - Drug ineffective [None]
  - Dyspnoea [None]
  - Pneumonia [None]
  - Dry skin [None]
  - Skin discolouration [None]

NARRATIVE: CASE EVENT DATE: 20231101
